FAERS Safety Report 9531975 (Version 1)
Quarter: 2013Q3

REPORT INFORMATION
  Report Type: Spontaneous
  Country: US (occurrence: None)
  Receive Date: 20130917
  Receipt Date: 20130917
  Transmission Date: 20140515
  Serious: Yes (Life-Threatening, Hospitalization)
  Sender: FDA-Public Use
  Company Number: None

PATIENT
  Age: 58 Year
  Sex: Male
  Weight: 66.2 kg

DRUGS (2)
  1. RIFAMPIN [Suspect]
     Indication: STAPHYLOCOCCAL INFECTION
     Dates: start: 20130731
  2. VANCOMYCIN [Suspect]
     Dates: start: 20130726

REACTIONS (3)
  - Haemolysis [None]
  - Haemoglobin decreased [None]
  - Paroxysmal nocturnal haemoglobinuria [None]
